FAERS Safety Report 8402222-1 (Version None)
Quarter: 2012Q2

REPORT INFORMATION
  Report Type: 
  Country: None (occurrence: None)
  Receive Date: 20120525
  Receipt Date: 20120515
  Transmission Date: 20120825
  Serious: Yes (Other)
  Sender: FDA-Public Use
  Company Number: 2012SP025810

PATIENT
  Age: 48 Year
  Sex: Female

DRUGS (1)
  1. IMPLANON [Suspect]
     Indication: PRODUCT USED FOR UNKNOWN INDICATION
     Dosage: 1 DF;
     Dates: start: 20080701

REACTIONS (2)
  - COLON CANCER [None]
  - INCORRECT DRUG ADMINISTRATION DURATION [None]
